FAERS Safety Report 10284746 (Version 1)
Quarter: 2014Q3

REPORT INFORMATION
  Report Type: Spontaneous
  Country: US (occurrence: None)
  Receive Date: 20140703
  Receipt Date: 20140703
  Transmission Date: 20150326
  Serious: Yes (Hospitalization)
  Sender: FDA-Public Use
  Company Number: None

PATIENT
  Age: 68 Year
  Sex: Female
  Weight: 120.91 kg

DRUGS (2)
  1. TRIAPINE [Suspect]
     Active Substance: INVESTIGATIONAL PRODUCT
     Dates: end: 20140613
  2. CISPLATIN. [Suspect]
     Active Substance: CISPLATIN
     Dates: end: 20140610

REACTIONS (3)
  - Oedema peripheral [None]
  - Aortic valve incompetence [None]
  - Dyspnoea [None]

NARRATIVE: CASE EVENT DATE: 20140617
